FAERS Safety Report 7629732-9 (Version None)
Quarter: 2011Q3

REPORT INFORMATION
  Report Type: 
  Country: None (occurrence: None)
  Receive Date: 20110701
  Receipt Date: 20101110
  Transmission Date: 20111222
  Serious: Yes (Other)
  Sender: FDA-Public Use
  Company Number: 7027064

PATIENT
  Age: 31 Year
  Sex: Female

DRUGS (1)
  1. REBIF [Suspect]
     Indication: MULTIPLE SCLEROSIS
     Dosage: 22 MCG, 3 IN 1 WK
     Dates: start: 20100901, end: 20101001

REACTIONS (5)
  - DEPRESSION [None]
  - MALAISE [None]
  - SUICIDAL IDEATION [None]
  - INFLUENZA LIKE ILLNESS [None]
  - INFLUENZA [None]
